FAERS Safety Report 24190421 (Version 1)
Quarter: 2024Q3

REPORT INFORMATION
  Report Type: Spontaneous
  Country: GB (occurrence: GB)
  Receive Date: 20240808
  Receipt Date: 20240808
  Transmission Date: 20241017
  Serious: Yes (Other)
  Sender: SANDOZ
  Company Number: None

PATIENT
  Age: 55 Year
  Sex: Female
  Weight: 60 kg

DRUGS (3)
  1. ESTRADIOL [Suspect]
     Active Substance: ESTRADIOL
     Indication: Adverse drug reaction
     Dosage: 75 MICROGAM PATCH - 2 A WEEK (EVERY 2.5 DAYS)
     Route: 065
     Dates: start: 20240718
  2. LEVOTHYROXINE [Concomitant]
     Active Substance: LEVOTHYROXINE\LEVOTHYROXINE SODIUM
     Indication: Adverse drug reaction
     Route: 065
     Dates: start: 20020901
  3. PROGESTERONE [Concomitant]
     Active Substance: PROGESTERONE
     Indication: Hormone replacement therapy
     Route: 065
     Dates: start: 20230501

REACTIONS (1)
  - Haemorrhage [Not Recovered/Not Resolved]

NARRATIVE: CASE EVENT DATE: 20240805
